FAERS Safety Report 4402380-X (Version None)
Quarter: 2004Q3

REPORT INFORMATION
  Report Type: 
  Country: None (occurrence: None)
  Receive Date: 20040716
  Receipt Date: 20040713
  Transmission Date: 20050211
  Serious: Yes (Death, Hospitalization)
  Sender: FDA-Public Use
  Company Number: 04-07-0995

PATIENT
  Age: 72 Year
  Sex: Female

DRUGS (3)
  1. PHENYTOIN [Suspect]
     Indication: EPILEPSY
     Dosage: 250-1000MG INTRAVENOUS
     Route: 042
  2. CARBAMAZEPINE [Suspect]
     Indication: EPILEPSY
     Dosage: 400-800 MG ORAL
     Route: 048
  3. VALPROATE SODIUM [Concomitant]

REACTIONS (3)
  - HYPOTHYROIDISM [None]
  - SEPSIS [None]
  - URINARY TRACT INFECTION [None]
